FAERS Safety Report 21612488 (Version 2)
Quarter: 2023Q1

REPORT INFORMATION
  Report Type: Spontaneous
  Country: BE (occurrence: BE)
  Receive Date: 20221118
  Receipt Date: 20230208
  Transmission Date: 20230418
  Serious: Yes (Hospitalization)
  Sender: FDA-Public Use
  Company Number: BE-JNJFOC-20221121042

PATIENT
  Age: 49 Year
  Sex: Male

DRUGS (1)
  1. STELARA [Suspect]
     Active Substance: USTEKINUMAB
     Indication: Product used for unknown indication
     Route: 058
     Dates: start: 202206

REACTIONS (3)
  - Small intestinal obstruction [Unknown]
  - Henoch-Schonlein purpura [Unknown]
  - Gait inability [Unknown]

NARRATIVE: CASE EVENT DATE: 20220930
